FAERS Safety Report 9193435 (Version 1)
Quarter: 2013Q1

REPORT INFORMATION
  Report Type: Spontaneous
  Country: US (occurrence: US)
  Receive Date: 20130327
  Receipt Date: 20130327
  Transmission Date: 20140127
  Serious: No
  Sender: FDA-Public Use
  Company Number: US-PFIZER INC-2013096342

PATIENT
  Age: 63 Year
  Sex: Male
  Weight: 83.45 kg

DRUGS (4)
  1. LYRICA [Suspect]
     Indication: FIBROMYALGIA
     Dosage: 250 MG, UNK
     Route: 048
     Dates: start: 2012, end: 20120904
  2. LYRICA [Suspect]
     Dosage: 400 MG, 1X/DAY
     Route: 048
     Dates: start: 20120905
  3. DILANTIN [Concomitant]
     Dosage: UNK
  4. SAVELLA [Concomitant]
     Dosage: 50 MG, UNK

REACTIONS (3)
  - Drug ineffective [Unknown]
  - Drug effect decreased [Unknown]
  - Enzyme level increased [Unknown]
